FAERS Safety Report 6922372-6 (Version None)
Quarter: 2010Q3

REPORT INFORMATION
  Report Type: 
  Country: None (occurrence: None)
  Receive Date: 20100813
  Receipt Date: 20100804
  Transmission Date: 20110219
  Serious: Yes (Other)
  Sender: FDA-Public Use
  Company Number: US-JNJFOC-20100508921

PATIENT
  Sex: Female

DRUGS (4)
  1. REMICADE [Suspect]
     Indication: RHEUMATOID ARTHRITIS
     Route: 042
     Dates: start: 20090901, end: 20100129
  2. REMICADE [Suspect]
     Route: 042
     Dates: start: 20090901, end: 20100129
  3. REMICADE [Suspect]
     Dosage: 7 VIALS EVERY 6 WEEKS
     Route: 042
     Dates: start: 20090901, end: 20100129
  4. NSAIDS [Concomitant]
     Indication: PAIN

REACTIONS (2)
  - BREAST CANCER [None]
  - RHEUMATOID ARTHRITIS [None]
